FAERS Safety Report 4289642-4 (Version None)
Quarter: 2004Q1

REPORT INFORMATION
  Report Type: 
  Country: None (occurrence: None)
  Receive Date: 20040126
  Receipt Date: 20030922
  Transmission Date: 20041129
  Serious: No
  Sender: FDA-Public Use
  Company Number: USA031048743

PATIENT
  Age: 82 Year
  Sex: Female

DRUGS (1)
  1. FORTEO [Suspect]
     Indication: OSTEOPOROSIS
     Dosage: 1 UG/DAY

REACTIONS (4)
  - ASTHENIA [None]
  - INJECTION SITE PAIN [None]
  - MUSCULAR WEAKNESS [None]
  - NAUSEA [None]
